FAERS Safety Report 5144907-9 (Version None)
Quarter: 2006Q4

REPORT INFORMATION
  Report Type: 
  Country: None (occurrence: None)
  Receive Date: 20061107
  Receipt Date: 20061010
  Transmission Date: 20070319
  Serious: Yes (Hospitalization)
  Sender: FDA-Public Use
  Company Number: PHRM2006FR02802

PATIENT
  Age: 84 Year
  Sex: Female

DRUGS (4)
  1. ACETAMINOPHEN AND TRAMADOL HCL [Concomitant]
     Dosage: 3 DF, QD
     Route: 048
  2. SPASMINE JOLLY /OLD FORM/ [Concomitant]
     Dosage: 2 DF, QD
     Route: 048
  3. TRANXENE [Concomitant]
     Dosage: 5 MG, QD
     Route: 048
  4. VISKALDIX [Suspect]
     Indication: ESSENTIAL HYPERTENSION
     Dosage: 1 DF, QD
     Route: 048
     Dates: end: 20060925

REACTIONS (10)
  - BLOOD CHLORIDE DECREASED [None]
  - BLOOD CREATINE PHOSPHOKINASE INCREASED [None]
  - BLOOD GLUCOSE INCREASED [None]
  - BLOOD POTASSIUM DECREASED [None]
  - FALL [None]
  - HAEMATOCRIT INCREASED [None]
  - HAEMOGLOBIN INCREASED [None]
  - HEART RATE INCREASED [None]
  - HYPOKALAEMIA [None]
  - WHITE BLOOD CELL COUNT INCREASED [None]
